FAERS Safety Report 8870264 (Version 1)
Quarter: 2012Q4

REPORT INFORMATION
  Report Type: Spontaneous
  Country: US (occurrence: None)
  Receive Date: 20121026
  Receipt Date: 20121026
  Transmission Date: 20130627
  Serious: Yes (Hospitalization)
  Sender: FDA-Public Use
  Company Number: None

PATIENT
  Sex: Female
  Weight: 54.43 kg

DRUGS (2)
  1. BENLYSTA [Suspect]
     Indication: SLE
     Dosage: q2 wksx3 then q mo
     Route: 042
     Dates: start: 20120330, end: 20120727
  2. BENLYSTA [Suspect]

REACTIONS (1)
  - Thrombocytopenia [None]
